FAERS Safety Report 13393442 (Version 1)
Quarter: 2017Q1

REPORT INFORMATION
  Report Type: Spontaneous
  Country: US (occurrence: US)
  Receive Date: 20170331
  Receipt Date: 20170331
  Transmission Date: 20170429
  Serious: No
  Sender: FDA-Public Use
  Company Number: US-PFIZER INC-2017139612

PATIENT
  Age: 52 Year
  Sex: Female

DRUGS (1)
  1. DUAVEE [Suspect]
     Active Substance: BAZEDOXIFENE ACETATE\ESTROGENS, CONJUGATED
     Dosage: UNK

REACTIONS (4)
  - Insomnia [Unknown]
  - Feeling abnormal [Recovering/Resolving]
  - Hot flush [Recovered/Resolved]
  - Depression [Unknown]
